FAERS Safety Report 10069234 (Version 2)
Quarter: 2014Q2

REPORT INFORMATION
  Report Type: Spontaneous
  Country: US (occurrence: US)
  Receive Date: 20140409
  Receipt Date: 20140409
  Transmission Date: 20141212
  Serious: No
  Sender: FDA-Public Use
  Company Number: US-ASTELLAS-2011US004709

PATIENT
  Sex: Female

DRUGS (2)
  1. PROTOPIC [Suspect]
     Indication: ECZEMA
     Dosage: 0.1 %, TOTAL DOSE
     Route: 061
  2. CLOBETASOL [Concomitant]
     Indication: PROPHYLAXIS
     Dosage: UNK
     Route: 061

REACTIONS (1)
  - Application site pain [Recovering/Resolving]
